FAERS Safety Report 7129458-4 (Version None)
Quarter: 2010Q4

REPORT INFORMATION
  Report Type: 
  Country: None (occurrence: None)
  Receive Date: 20101130
  Receipt Date: 20101120
  Transmission Date: 20110411
  Serious: Yes (Other)
  Sender: FDA-Public Use
  Company Number: US-SANOFI-AVENTIS-2010SA071274

PATIENT
  Age: 73 Year
  Sex: Male

DRUGS (4)
  1. LANTUS [Suspect]
     Dosage: DOSE:12 UNIT(S)
     Route: 058
     Dates: start: 19980101
  2. HUMALOG [Suspect]
  3. PLAVIX [Concomitant]
  4. RISPERDAL [Concomitant]

REACTIONS (1)
  - BLINDNESS [None]
